FAERS Safety Report 9284474 (Version 2)
Quarter: 2013Q3

REPORT INFORMATION
  Report Type: Spontaneous
  Country: US (occurrence: US)
  Receive Date: 20130510
  Receipt Date: 20130731
  Transmission Date: 20140515
  Serious: Yes (Other)
  Sender: FDA-Public Use
  Company Number: US-009507513-1305USA004027

PATIENT
  Age: 48 Year
  Sex: 0

DRUGS (2)
  1. CLINORIL [Suspect]
     Route: 048
  2. ACETAZOLAMIDE [Concomitant]
     Indication: INTRAOCULAR PRESSURE INCREASED
     Dosage: UNK
     Route: 048

REACTIONS (2)
  - Stevens-Johnson syndrome [Unknown]
  - Toxic epidermal necrolysis [Unknown]
